FAERS Safety Report 25953214 (Version 1)
Quarter: 2025Q4

REPORT INFORMATION
  Report Type: Spontaneous
  Country: EU (occurrence: EU)
  Receive Date: 20251023
  Receipt Date: 20251023
  Transmission Date: 20260118
  Serious: Yes (Other)
  Sender: BIOCON
  Company Number: EU-BIOCON-BBL2023001324

PATIENT

DRUGS (13)
  1. SEMGLEE (INSULIN GLARGINE-YFGN) [Suspect]
     Active Substance: INSULIN GLARGINE-YFGN
     Indication: Product used for unknown indication
     Dosage: 12-15 U/NIGHT
     Route: 065
  2. SEMGLEE (INSULIN GLARGINE-YFGN) [Suspect]
     Active Substance: INSULIN GLARGINE-YFGN
     Dosage: 4 U
     Route: 065
  3. SEMGLEE (INSULIN GLARGINE-YFGN) [Suspect]
     Active Substance: INSULIN GLARGINE-YFGN
     Dosage: 12 U
     Route: 065
  4. SEMGLEE (INSULIN GLARGINE-YFGN) [Suspect]
     Active Substance: INSULIN GLARGINE-YFGN
     Dosage: 10 U BEFORE NIGHT
     Route: 065
  5. KIRSTY [Suspect]
     Active Substance: INSULIN ASPART-XJHZ
     Indication: Product used for unknown indication
     Dosage: 10-10-8 U WITH MEALS
     Route: 058
  6. KIRSTY [Suspect]
     Active Substance: INSULIN ASPART-XJHZ
     Dosage: 10-6-6 U
     Route: 058
  7. KIRSTY [Suspect]
     Active Substance: INSULIN ASPART-XJHZ
     Dosage: 3-2-2 U
     Route: 058
  8. KIRSTY [Suspect]
     Active Substance: INSULIN ASPART-XJHZ
     Dosage: 10-6-2 U BEFORE NIGHT
     Route: 058
  9. ISOPHANE INSULIN [Suspect]
     Active Substance: INSULIN NOS
     Indication: Product used for unknown indication
     Dosage: 12 U BEFORE NIGHT
     Route: 065
  10. ISOPHANE INSULIN [Suspect]
     Active Substance: INSULIN NOS
     Dosage: 10 U
     Route: 065
  11. INSULIN LISPRO [Concomitant]
     Active Substance: INSULIN LISPRO
     Indication: Product used for unknown indication
     Dosage: 22/24-20-18
     Route: 065
  12. METFORMIN [Concomitant]
     Active Substance: METFORMIN HYDROCHLORIDE
     Indication: Product used for unknown indication
     Dosage: 850 MILLIGRAM, TID
     Route: 065
  13. EMPAGLIFLOZIN [Concomitant]
     Active Substance: EMPAGLIFLOZIN
     Indication: Product used for unknown indication
     Dosage: 10 MILLIGRAM, QD
     Route: 065

REACTIONS (3)
  - Diabetes mellitus inadequate control [Unknown]
  - Hypoglycaemia [Unknown]
  - Medication error [Unknown]
